FAERS Safety Report 8248938-1 (Version None)
Quarter: 2012Q2

REPORT INFORMATION
  Report Type: 
  Country: None (occurrence: None)
  Receive Date: 20120402
  Receipt Date: 20120321
  Transmission Date: 20120825
  Serious: No
  Sender: FDA-Public Use
  Company Number: JP-BRISTOL-MYERS SQUIBB COMPANY-16430951

PATIENT
  Age: 67 Year
  Sex: Male

DRUGS (2)
  1. VEPESID [Suspect]
     Indication: LUNG NEOPLASM MALIGNANT
     Dosage: COMBINATION THERAPY WITH CBDCA,2 WEEKS AGO
     Route: 042
  2. CARBOPLATIN [Suspect]
     Indication: LUNG NEOPLASM MALIGNANT
     Dosage: CBDCA,2 WEEKS AGO

REACTIONS (1)
  - BLOOD PRESSURE DECREASED [None]
